FAERS Safety Report 25050918 (Version 1)
Quarter: 2025Q1

REPORT INFORMATION
  Report Type: Spontaneous
  Country: IR (occurrence: IR)
  Receive Date: 20250307
  Receipt Date: 20250307
  Transmission Date: 20250408
  Serious: Yes (Hospitalization)
  Sender: ASTELLAS
  Company Number: IR-ASTELLAS-2025-AER-013139

PATIENT
  Age: 14 Year
  Sex: Male

DRUGS (7)
  1. TACROLIMUS [Suspect]
     Active Substance: TACROLIMUS
     Indication: Renal transplant
     Route: 065
  2. TACROLIMUS [Suspect]
     Active Substance: TACROLIMUS
     Route: 065
  3. mycophenolate mofetile (MMF) [Concomitant]
     Indication: Renal transplant
     Route: 065
  4. mycophenolate mofetile (MMF) [Concomitant]
     Route: 065
  5. mycophenolate mofetile (MMF) [Concomitant]
     Route: 065
  6. PREDNISONE [Concomitant]
     Active Substance: PREDNISONE
     Indication: Renal transplant
     Route: 065
  7. anti thymocete glubuline (ATG) [Concomitant]
     Indication: Renal transplant
     Route: 065

REACTIONS (4)
  - Normochromic anaemia [Recovered/Resolved]
  - Normocytic anaemia [Recovered/Resolved]
  - Parvovirus B19 infection [Recovered/Resolved]
  - Cytomegalovirus infection [Recovered/Resolved]
